FAERS Safety Report 7585711-1 (Version None)
Quarter: 2011Q2

REPORT INFORMATION
  Report Type: 
  Country: None (occurrence: None)
  Receive Date: 20110629
  Receipt Date: 20110629
  Transmission Date: 20111010
  Serious: Yes (Other)
  Sender: FDA-Public Use
  Company Number: None

PATIENT
  Age: 68 Year
  Sex: Female
  Weight: 79.3795 kg

DRUGS (1)
  1. LEVAQUIN [Suspect]
     Indication: PNEUMONIA
     Dosage: 1 A DAY 8 DAYS BY MOUTH
     Route: 048
     Dates: start: 20110420, end: 20110427

REACTIONS (2)
  - MUSCULOSKELETAL PAIN [None]
  - ARTHROPATHY [None]
